FAERS Safety Report 9508311 (Version 1)
Quarter: 2013Q3

REPORT INFORMATION
  Report Type: Spontaneous
  Country: US (occurrence: US)
  Receive Date: 20130909
  Receipt Date: 20130909
  Transmission Date: 20140515
  Serious: No
  Sender: FDA-Public Use
  Company Number: US-PFIZER INC-2013256414

PATIENT
  Age: 76 Year
  Sex: Female

DRUGS (2)
  1. ADVIL [Suspect]
     Indication: PAIN
     Dosage: UNK, AS NEEDED
     Dates: end: 201308
  2. ADVIL [Suspect]
     Indication: ANTIINFLAMMATORY THERAPY

REACTIONS (2)
  - Pruritus [Recovered/Resolved]
  - Product quality issue [Recovered/Resolved]
